FAERS Safety Report 8409941-1 (Version None)
Quarter: 2012Q2

REPORT INFORMATION
  Report Type: 
  Country: None (occurrence: None)
  Receive Date: 20120605
  Receipt Date: 20120604
  Transmission Date: 20120825
  Serious: Yes (Other)
  Sender: FDA-Public Use
  Company Number: AU-BAYER-2012-054611

PATIENT
  Age: 56 Year
  Sex: Female
  Weight: 76.4 kg

DRUGS (3)
  1. TYSABRI [Concomitant]
     Indication: MULTIPLE SCLEROSIS
     Dosage: UNK UNK, Q1MON
  2. ACETAMINOPHEN [Concomitant]
     Dosage: UNK, PRN
  3. GADAVIST [Suspect]
     Indication: MULTIPLE SCLEROSIS
     Dosage: 5 ML, ONCE
     Dates: start: 20120602, end: 20120602

REACTIONS (5)
  - THROAT IRRITATION [None]
  - PARAESTHESIA MUCOSAL [None]
  - DYSPHAGIA [None]
  - ERYTHEMA [None]
  - COUGH [None]
